FAERS Safety Report 21364776 (Version 1)
Quarter: 2022Q3

REPORT INFORMATION
  Report Type: Spontaneous
  Country: DE (occurrence: DE)
  Receive Date: 20220922
  Receipt Date: 20220922
  Transmission Date: 20221027
  Serious: Yes (Hospitalization)
  Sender: FDA-Public Use
  Company Number: None

PATIENT
  Age: 79 Year
  Sex: Male
  Weight: 78 kg

DRUGS (16)
  1. FRAGMIN [Suspect]
     Active Substance: DALTEPARIN SODIUM
     Dosage: 7000 IE, 1-0-1-0
     Route: 058
  2. ASPIRIN [Suspect]
     Active Substance: ASPIRIN
     Dosage: 100 MG, 0-1-0-0
     Route: 048
  3. CARVEDILOL [Concomitant]
     Active Substance: CARVEDILOL
     Dosage: 25 MG, 1-0-0-0
     Route: 048
  4. TEVACIDOL [Concomitant]
     Dosage: 1 ?G, 0-0-1-0
     Route: 048
  5. FOSTER [Concomitant]
     Active Substance: BECLOMETHASONE\FORMOTEROL
     Dosage: 6/100 UG, 2-0-2-0
     Route: 048
  6. METAMIZOLE [Concomitant]
     Active Substance: METAMIZOLE
     Dosage: 500 MG, IF NECESSARY UP TO FOUR TIMES ONE TABLET PER DAY
     Route: 048
  7. CALCIUM CARBONATE\MAGNESIUM CARBONATE [Concomitant]
     Active Substance: CALCIUM CARBONATE\MAGNESIUM CARBONATE
     Dosage: 680/80 MG, 0-1-1-0
     Route: 048
  8. XIPAMIDE [Concomitant]
     Active Substance: XIPAMIDE
     Dosage: 40 MG, MONDAY WEDNESDAY FRIDAY SUNDAY HALF A TABLET EACH IN THE MORNING
     Route: 048
  9. ATORVASTATIN [Concomitant]
     Active Substance: ATORVASTATIN
     Dosage: 40 MG, 0-0-1-0
     Route: 048
  10. PHENPROCOUMON [Concomitant]
     Active Substance: PHENPROCOUMON
     Dosage: 3 MG, CURRENTLY PAUSED OTHERWISE DEPENDING ON THE INR
     Route: 048
  11. TRIMIPRAMINE [Concomitant]
     Active Substance: TRIMIPRAMINE
     Dosage: 25 MG, 0-0-0-1
     Route: 048
  12. ALBUTEROL [Concomitant]
     Active Substance: ALBUTEROL
     Dosage: IF NECESSARY, UP TO THREE TIMES TWO STROKES PER DAY
     Route: 048
  13. MELPERONE [Concomitant]
     Active Substance: MELPERONE
     Dosage: 25 MG, 0-0-1-0
     Route: 048
  14. TORSEMIDE [Concomitant]
     Active Substance: TORSEMIDE
     Dosage: 200 MG, MONDAY WEDNESDAY FRIDAY SUNDAY ONE TABLET EACH IN THE MORNING
     Route: 048
  15. ACETYLCYSTEINE [Concomitant]
     Active Substance: ACETYLCYSTEINE
     Dosage: 300 MG, 1-0-0-0
     Route: 048
  16. PANTOPRAZOLE [Concomitant]
     Active Substance: PANTOPRAZOLE
     Dosage: 20 MG, 1-0-0-0
     Route: 048

REACTIONS (4)
  - Vascular access site dissection [Unknown]
  - Haematoma [Unknown]
  - Haemorrhage [Unknown]
  - Coagulopathy [Unknown]
